FAERS Safety Report 14349772 (Version 1)
Quarter: 2018Q1

REPORT INFORMATION
  Report Type: Report from Study
  Country: BR (occurrence: BR)
  Receive Date: 20180104
  Receipt Date: 20180104
  Transmission Date: 20180509
  Serious: Yes (Other)
  Sender: FDA-Public Use
  Company Number: PHHY2017BR197827

PATIENT
  Age: 85 Year
  Sex: Female
  Weight: 74 kg

DRUGS (1)
  1. ACLASTA [Suspect]
     Active Substance: ZOLEDRONIC ACID
     Indication: OSTEOPOROSIS
     Dosage: 1 DF (5 MG/100 ML), Q12MO
     Route: 042
     Dates: start: 20171026

REACTIONS (7)
  - Malaise [Recovering/Resolving]
  - Sinusitis [Unknown]
  - Deafness [Not Recovered/Not Resolved]
  - Dysphonia [Recovering/Resolving]
  - Head discomfort [Not Recovered/Not Resolved]
  - Pain [Recovering/Resolving]
  - Oropharyngeal pain [Recovering/Resolving]
